FAERS Safety Report 6954728-X (Version None)
Quarter: 2010Q3

REPORT INFORMATION
  Report Type: 
  Country: None (occurrence: None)
  Receive Date: 20100829
  Receipt Date: 20090210
  Transmission Date: 20110219
  Serious: No
  Sender: FDA-Public Use
  Company Number: US-ALLERGAN-0901729US

PATIENT
  Age: 81 Year
  Sex: Female

DRUGS (3)
  1. FML FORTE [Suspect]
     Indication: POSTOPERATIVE CARE
     Route: 047
  2. THYROID MEDICATION (UNSPECIFIED) [Concomitant]
     Dosage: UNK, QAM
  3. THYROID MEDICATION (UNSPECIFIED) [Concomitant]
     Dosage: UNK, QHS

REACTIONS (1)
  - GLOSSODYNIA [None]
